FAERS Safety Report 16377230 (Version 3)
Quarter: 2020Q4

REPORT INFORMATION
  Report Type: Spontaneous
  Country: US (occurrence: US)
  Receive Date: 20190531
  Receipt Date: 20201007
  Transmission Date: 20210113
  Serious: Yes (Death, Other)
  Sender: FDA-Public Use
  Company Number: US-JNJFOC-20190531419

PATIENT
  Age: 58 Year
  Sex: Male
  Weight: 132.57 kg

DRUGS (16)
  1. PREDNISONE. [Concomitant]
     Active Substance: PREDNISONE
     Indication: GOUT
     Route: 048
  2. METFORMIN HCL [Concomitant]
     Active Substance: METFORMIN HYDROCHLORIDE
     Route: 065
  3. TRIAMCINOLONE [Concomitant]
     Active Substance: TRIAMCINOLONE
     Indication: PSORIASIS
     Dosage: OINTMENT/CREAM
     Route: 065
  4. VASOTEC [Concomitant]
     Active Substance: ENALAPRIL MALEATE
     Route: 065
  5. CITALOPRAM [Concomitant]
     Active Substance: CITALOPRAM HYDROBROMIDE
     Route: 065
  6. COUMADIN [Concomitant]
     Active Substance: WARFARIN SODIUM
     Route: 065
  7. STELARA [Suspect]
     Active Substance: USTEKINUMAB
     Indication: PSORIASIS
     Route: 058
     Dates: start: 20171010, end: 20190104
  8. PROPAFENONE HYDROCHLORIDE. [Concomitant]
     Active Substance: PROPAFENONE HYDROCHLORIDE
     Route: 065
  9. MORPHINE [Concomitant]
     Active Substance: MORPHINE
     Route: 065
  10. METOPROLOL. [Concomitant]
     Active Substance: METOPROLOL
     Route: 065
  11. RESTORIL [Concomitant]
     Active Substance: TEMAZEPAM
     Route: 065
  12. HYDROCODONE [Concomitant]
     Active Substance: HYDROCODONE
     Dosage: 10-325 MG
     Route: 065
  13. PANTOPRAZOLE [Concomitant]
     Active Substance: PANTOPRAZOLE
     Route: 065
  14. ATORVASTATIN [Concomitant]
     Active Substance: ATORVASTATIN
     Route: 065
  15. WELLBUTRIN [Concomitant]
     Active Substance: BUPROPION HYDROCHLORIDE
     Route: 065
  16. LASIX [Concomitant]
     Active Substance: FUROSEMIDE
     Route: 065

REACTIONS (5)
  - Chronic obstructive pulmonary disease [Fatal]
  - Medical procedure [Unknown]
  - Septic shock [Fatal]
  - Abdominal pain [Unknown]
  - Stasis dermatitis [Unknown]

NARRATIVE: CASE EVENT DATE: 201812
